FAERS Safety Report 4279291-6 (Version None)
Quarter: 2004Q1

REPORT INFORMATION
  Report Type: 
  Country: None (occurrence: None)
  Receive Date: 20040122
  Receipt Date: 20040109
  Transmission Date: 20041129
  Serious: Yes (Hospitalization)
  Sender: FDA-Public Use
  Company Number: 2004000582

PATIENT
  Age: 71 Year
  Sex: Female

DRUGS (8)
  1. NEURONTIN [Suspect]
     Indication: CONVULSION
     Dosage: 1200 MG (TID), ORAL
     Route: 048
     Dates: start: 20031104, end: 20031128
  2. OMEPRAZOLE [Concomitant]
  3. METOPROLOL TARTRATE [Concomitant]
  4. ALPRAZOLAM [Concomitant]
  5. ATENOLOL [Concomitant]
  6. FLUVASTATIN (FLUVASTATIN) [Concomitant]
  7. ENDOTELON (VITIS VINIFERA, HERBAL EXTRACTS NOS) [Concomitant]
  8. METHYLPREDNISOLONE [Concomitant]

REACTIONS (2)
  - STEVENS-JOHNSON SYNDROME [None]
  - TOXIC SKIN ERUPTION [None]
